FAERS Safety Report 14273464 (Version 2)
Quarter: 2018Q2

REPORT INFORMATION
  Report Type: Spontaneous
  Country: FR (occurrence: FR)
  Receive Date: 20171211
  Receipt Date: 20180402
  Transmission Date: 20180711
  Serious: Yes (Hospitalization, Other)
  Sender: FDA-Public Use
  Company Number: FR-OTSUKA-2016_020607

PATIENT
  Age: 52 Year
  Sex: Male
  Weight: 69 kg

DRUGS (3)
  1. THERALENE [Concomitant]
     Active Substance: TRIMEPRAZINE
     Indication: PRODUCT USED FOR UNKNOWN INDICATION
     Dosage: 4 DF, QD
     Route: 048
     Dates: start: 20160707
  2. ABILIFY [Suspect]
     Active Substance: ARIPIPRAZOLE
     Indication: PSYCHOTIC DISORDER
     Dosage: 1 DF, QD
     Route: 048
     Dates: start: 20160707, end: 20160720
  3. VALIUM [Concomitant]
     Active Substance: DIAZEPAM
     Indication: PRODUCT USED FOR UNKNOWN INDICATION
     Dosage: 1 DF, TID
     Route: 048
     Dates: start: 20160707

REACTIONS (6)
  - Muscular weakness [Recovered/Resolved]
  - Gastrointestinal disorder [Recovered/Resolved]
  - Urinary retention [Recovered/Resolved]
  - Product use in unapproved indication [Unknown]
  - Urinary incontinence [Recovered/Resolved]
  - Fall [Recovered/Resolved]

NARRATIVE: CASE EVENT DATE: 20160713
